FAERS Safety Report 8837157 (Version 2)
Quarter: 2012Q4

REPORT INFORMATION
  Report Type: Report from Study
  Country: IT (occurrence: IT)
  Receive Date: 20121011
  Receipt Date: 20121123
  Transmission Date: 20130627
  Serious: Yes (Hospitalization, Other)
  Sender: FDA-Public Use
  Company Number: IT-ROCHE-1142659

PATIENT
  Age: 65 Year
  Sex: Male
  Weight: 107 kg

DRUGS (6)
  1. TRASTUZUMAB [Suspect]
     Indication: COLORECTAL CANCER METASTATIC
     Dosage: On 21/Sep/2012 he received his last dose of Trastuzumab prior to the SAE
     Route: 042
     Dates: start: 20120824, end: 20120824
  2. TRASTUZUMAB [Suspect]
     Route: 042
     Dates: start: 20120831
  3. TRASTUZUMAB [Suspect]
     Dosage: after 09/Oct/2012, three dose administered
     Route: 042
  4. LAPATINIB [Suspect]
     Indication: COLORECTAL CANCER METASTATIC
     Dosage: 28/Sep/2012 he received his last dose of Lapatinib prior to the SAE
     Route: 048
     Dates: start: 20120824
  5. CARDIOASPIRINA [Concomitant]
     Indication: AORTIC THROMBOSIS
     Route: 048
     Dates: start: 2010
  6. LENDORMIN [Concomitant]
     Indication: INSOMNIA
     Route: 048
     Dates: start: 2010

REACTIONS (1)
  - Myocardial infarction [Recovered/Resolved]
